FAERS Safety Report 8770693 (Version 2)
Quarter: 2012Q4

REPORT INFORMATION
  Report Type: Report from Study
  Country: US (occurrence: US)
  Receive Date: 20120906
  Receipt Date: 20120923
  Transmission Date: 20130627
  Serious: Yes (Hospitalization)
  Sender: FDA-Public Use
  Company Number: US-ABBOTT-12P-163-0974367-00

PATIENT
  Age: 55 None
  Sex: Female
  Weight: 79.9 kg

DRUGS (9)
  1. HUMIRA 40 MG/0.8 ML PEN [Suspect]
     Indication: RHEUMATOID ARTHRITIS
     Dates: start: 2010
  2. LYRICA [Concomitant]
     Indication: FIBROMYALGIA
  3. CRESTOR [Concomitant]
     Indication: HYPERLIPIDAEMIA
  4. PROPANOLOL [Concomitant]
     Indication: TREMOR
  5. CLONAZEPAM [Concomitant]
     Indication: TREMOR
  6. CELEBREX [Concomitant]
     Indication: RHEUMATOID ARTHRITIS
  7. HYDROCODONE [Concomitant]
     Indication: SPINAL COLUMN STENOSIS
  8. LEVOTHYROXINE [Concomitant]
     Indication: HYPOTHYROIDISM
  9. ASPIRIN [Concomitant]
     Indication: CARDIAC DISORDER

REACTIONS (5)
  - Joint swelling [Recovered/Resolved]
  - Cellulitis [Recovered/Resolved]
  - Erythema [Recovered/Resolved]
  - Ligament sprain [Recovered/Resolved]
  - Fall [Recovered/Resolved]
